FAERS Safety Report 20292222 (Version 2)
Quarter: 2022Q1

REPORT INFORMATION
  Report Type: Spontaneous
  Country: US (occurrence: US)
  Receive Date: 20220104
  Receipt Date: 20220131
  Transmission Date: 20220423
  Serious: Yes (Other)
  Sender: FDA-Public Use
  Company Number: US-PFIZER INC-202101852141

PATIENT
  Age: 80 Year
  Sex: Female

DRUGS (1)
  1. IBRANCE [Suspect]
     Active Substance: PALBOCICLIB
     Indication: Breast cancer
     Dosage: 100 MG, CYCLIC  (21 DAY, OFF 7)
     Route: 048
     Dates: start: 2019

REACTIONS (2)
  - Neuropathy peripheral [Not Recovered/Not Resolved]
  - Skin tightness [Not Recovered/Not Resolved]
